FAERS Safety Report 7683913-7 (Version None)
Quarter: 2011Q3

REPORT INFORMATION
  Report Type: 
  Country: None (occurrence: None)
  Receive Date: 20110815
  Receipt Date: 20110809
  Transmission Date: 20111222
  Serious: Yes (Other)
  Sender: FDA-Public Use
  Company Number: CA-PFIZER INC-2011138543

PATIENT
  Age: 68 Year
  Sex: Female

DRUGS (6)
  1. PREMARIN [Concomitant]
     Dosage: 0.625 MG, UNK
  2. BROMAZEPAM [Concomitant]
     Dosage: 1.5 MG, 1X/DAY IN THE MORNING
  3. DETROL LA [Suspect]
     Indication: HYPERTONIC BLADDER
     Dosage: 4 MG, 1X/DAY
     Dates: start: 20110301
  4. DETROL LA [Suspect]
     Dosage: 2X 4MG EVERY MORNING
     Dates: end: 20110701
  5. PREMARIN [Concomitant]
     Dosage: OCCASIONALLY
     Route: 067
  6. VITALUX [Concomitant]
     Indication: EYE DISORDER

REACTIONS (5)
  - CONSTIPATION [None]
  - VISION BLURRED [None]
  - DRUG EFFECT DECREASED [None]
  - POLLAKIURIA [None]
  - FATIGUE [None]
